FAERS Safety Report 21819129 (Version 1)
Quarter: 2023Q1

REPORT INFORMATION
  Report Type: Spontaneous
  Country: US (occurrence: None)
  Receive Date: 20230103
  Receipt Date: 20230103
  Transmission Date: 20230418
  Serious: No
  Sender: FDA-Public Use
  Company Number: None

PATIENT
  Age: 84 Year
  Sex: Male
  Weight: 77.11 kg

DRUGS (7)
  1. PANTOPRAZOLE SODIUM ANHYDROUS [Suspect]
     Active Substance: PANTOPRAZOLE SODIUM ANHYDROUS
     Indication: Gastrooesophageal reflux disease
     Dosage: OTHER QUANTITY : 1 PILL;?FREQUENCY : TWICE A DAY;?
     Route: 048
     Dates: start: 20220909, end: 20221028
  2. PREDNISONE [Concomitant]
     Active Substance: PREDNISONE
  3. ADVIL [Concomitant]
     Active Substance: IBUPROFEN
  4. FISH OIL [Concomitant]
     Active Substance: FISH OIL
  5. KRILL OIL [Concomitant]
     Active Substance: DIETARY SUPPLEMENT\KRILL OIL
  6. VITA B12 [Concomitant]
  7. VITA D [Concomitant]

REACTIONS (11)
  - Arthralgia [None]
  - Myalgia [None]
  - Feeling cold [None]
  - Fatigue [None]
  - Lethargy [None]
  - Peripheral swelling [None]
  - Peripheral swelling [None]
  - C-reactive protein increased [None]
  - Constipation [None]
  - Pollakiuria [None]
  - Therapy cessation [None]

NARRATIVE: CASE EVENT DATE: 20221001
